FAERS Safety Report 23908170 (Version 1)
Quarter: 2024Q2

REPORT INFORMATION
  Report Type: Spontaneous
  Country: US (occurrence: US)
  Receive Date: 20240528
  Receipt Date: 20240528
  Transmission Date: 20240716
  Serious: Yes (Hospitalization)
  Sender: FDA-Public Use
  Company Number: US-BAYER-2024A073823

PATIENT
  Age: 55 Year
  Sex: Female

DRUGS (10)
  1. ADEMPAS [Suspect]
     Active Substance: RIOCIGUAT
     Indication: Pulmonary arterial hypertension
     Dosage: 1 MG, TID
     Route: 048
     Dates: start: 20211018
  2. AMBRISENTAN [Concomitant]
     Active Substance: AMBRISENTAN
     Dosage: 5 MG
  3. AMBRISENTAN [Concomitant]
     Active Substance: AMBRISENTAN
     Dosage: 10 MG
  4. TREPROSTINIL [Concomitant]
     Active Substance: TREPROSTINIL
  5. POTASSIUM CHLORIDE [Concomitant]
     Active Substance: POTASSIUM CHLORIDE
  6. HUMULIN N [Concomitant]
     Active Substance: INSULIN HUMAN
  7. LOSARTAN [Concomitant]
     Active Substance: LOSARTAN
  8. GLIPIZIDE [Concomitant]
     Active Substance: GLIPIZIDE
  9. SIMVASTATIN [Concomitant]
     Active Substance: SIMVASTATIN
  10. METFORMIN [Concomitant]
     Active Substance: METFORMIN HYDROCHLORIDE

REACTIONS (5)
  - Acute pulmonary oedema [None]
  - Pulmonary arterial hypertension [None]
  - Respiratory failure [None]
  - Sepsis [None]
  - Dyspnoea [None]

NARRATIVE: CASE EVENT DATE: 20240501
